FAERS Safety Report 5093888-5 (Version None)
Quarter: 2006Q3

REPORT INFORMATION
  Report Type: 
  Country: None (occurrence: None)
  Receive Date: 20060829
  Receipt Date: 20060829
  Transmission Date: 20061208
  Serious: Yes (Other)
  Sender: FDA-Public Use
  Company Number: None

PATIENT
  Sex: Female
  Weight: 102.0593 kg

DRUGS (2)
  1. SEROQUEL [Suspect]
     Indication: INSOMNIA
     Dosage: SEE IMAGE
     Dates: start: 19970101, end: 20060401
  2. SEROQUEL [Suspect]
     Indication: INSOMNIA
     Dosage: SEE IMAGE
     Dates: start: 20060402, end: 20060801

REACTIONS (15)
  - CARDIAC DISORDER [None]
  - CONFUSIONAL STATE [None]
  - DIZZINESS [None]
  - HEADACHE [None]
  - IMPAIRED WORK ABILITY [None]
  - JOINT LOCK [None]
  - MUSCLE TWITCHING [None]
  - MYALGIA [None]
  - NERVOUS SYSTEM DISORDER [None]
  - PAIN [None]
  - PARAESTHESIA [None]
  - SYNCOPE [None]
  - THROMBOSIS [None]
  - TREMOR [None]
  - VISUAL DISTURBANCE [None]
